FAERS Safety Report 7037115-8 (Version None)
Quarter: 2010Q4

REPORT INFORMATION
  Report Type: 
  Country: None (occurrence: None)
  Receive Date: 20101011
  Receipt Date: 20101006
  Transmission Date: 20110411
  Serious: Yes (Death, Hospitalization, Other)
  Sender: FDA-Public Use
  Company Number: PHHY2009TW61027

PATIENT
  Sex: Female

DRUGS (4)
  1. EXJADE [Suspect]
     Dosage: 10 TABLETS, UNK
     Route: 048
     Dates: start: 20090819
  2. EXJADE [Suspect]
     Dosage: 10 TABLETS, UNK
     Route: 048
     Dates: start: 20090820
  3. EXJADE [Suspect]
     Dosage: 08 TABLETS, UNK
     Route: 048
     Dates: start: 20100111
  4. EXJADE [Suspect]
     Dosage: 1000 MG, UNK
     Route: 048

REACTIONS (12)
  - ALANINE AMINOTRANSFERASE INCREASED [None]
  - ASPARTATE AMINOTRANSFERASE INCREASED [None]
  - CATHETERISATION CARDIAC [None]
  - DEATH [None]
  - DIARRHOEA [None]
  - FATIGUE [None]
  - HEADACHE [None]
  - HYPERTROPHIC CARDIOMYOPATHY [None]
  - MYOCARDIAL CALCIFICATION [None]
  - NAUSEA [None]
  - PRURITUS [None]
  - VOMITING [None]
